FAERS Safety Report 9949332 (Version 1)
Quarter: 2014Q1

REPORT INFORMATION
  Report Type: Report from Study
  Country: US (occurrence: US)
  Receive Date: 20140304
  Receipt Date: 20140304
  Transmission Date: 20141002
  Serious: No
  Sender: FDA-Public Use
  Company Number: US-ABBVIE-13P-163-1066171-00

PATIENT
  Age: 64 Year
  Sex: Female

DRUGS (8)
  1. HUMIRA [Suspect]
     Indication: COLITIS ULCERATIVE
     Route: 058
     Dates: start: 201109
  2. HUMIRA [Suspect]
     Indication: RHEUMATOID ARTHRITIS
  3. DIOVAN [Concomitant]
     Indication: BLOOD PRESSURE
  4. WELLBUTRIN [Concomitant]
     Indication: DEPRESSION
  5. ZYRTEC [Concomitant]
     Indication: HYPERSENSITIVITY
  6. TRAMADOL [Concomitant]
     Indication: PAIN
  7. TYLENOL [Concomitant]
     Indication: PAIN
  8. ACYCLOVIR [Concomitant]
     Indication: ORAL HERPES

REACTIONS (2)
  - Muscular weakness [Unknown]
  - Pain in extremity [Unknown]
